FAERS Safety Report 24677697 (Version 1)
Quarter: 2024Q4

REPORT INFORMATION
  Report Type: Spontaneous
  Country: US (occurrence: US)
  Receive Date: 20241129
  Receipt Date: 20241129
  Transmission Date: 20250115
  Serious: No
  Sender: CSL BEHRING
  Company Number: US-BEH-2024185741

PATIENT
  Age: 38 Year
  Sex: Female

DRUGS (2)
  1. HIZENTRA [Suspect]
     Active Substance: HUMAN IMMUNOGLOBULIN G
     Indication: Primary immunodeficiency syndrome
     Route: 058
  2. HIZENTRA [Suspect]
     Active Substance: HUMAN IMMUNOGLOBULIN G
     Indication: Chronic inflammatory demyelinating polyradiculoneuropathy

REACTIONS (6)
  - Injection site haemorrhage [Unknown]
  - Injection site discharge [Unknown]
  - Headache [Unknown]
  - Migraine [Unknown]
  - Fatigue [Unknown]
  - Decreased appetite [Unknown]
